FAERS Safety Report 9692811 (Version 1)
Quarter: 2013Q4

REPORT INFORMATION
  Report Type: Spontaneous
  Country: US (occurrence: US)
  Receive Date: 20131118
  Receipt Date: 20131118
  Transmission Date: 20140711
  Serious: Yes (Other)
  Sender: FDA-Public Use
  Company Number: US-JNJFOC-20131107618

PATIENT
  Age: 88 Year
  Sex: Male
  Weight: 71.22 kg

DRUGS (4)
  1. XARELTO [Suspect]
     Indication: ATRIAL FIBRILLATION
     Route: 048
     Dates: start: 201308
  2. XARELTO [Suspect]
     Indication: CEREBROVASCULAR ACCIDENT PROPHYLAXIS
     Route: 048
     Dates: start: 201308
  3. PROCRIT [Concomitant]
     Indication: ANAEMIA OF MALIGNANT DISEASE
     Route: 058
     Dates: start: 20131031, end: 20131031
  4. FOLIC ACID W/VITAMINS NOS [Concomitant]
     Indication: MYELODYSPLASTIC SYNDROME
     Dosage: 100MCGB12, B6 AND FOLIC ACID 400MCGU/TABLET/100MCGB12,B6 AND FOLIC ACID 400MCG
     Route: 048
     Dates: start: 201304

REACTIONS (2)
  - Myelodysplastic syndrome [Unknown]
  - Iron overload [Unknown]
